FAERS Safety Report 18684036 (Version 1)
Quarter: 2020Q4

REPORT INFORMATION
  Report Type: Spontaneous
  Country: CN (occurrence: CN)
  Receive Date: 20201230
  Receipt Date: 20201230
  Transmission Date: 20210114
  Serious: Yes (Other)
  Sender: FDA-Public Use
  Company Number: CN-PFIZER INC-2020513215

PATIENT
  Age: 84 Year
  Sex: Male
  Weight: 75 kg

DRUGS (3)
  1. AO XI KANG [Suspect]
     Active Substance: OMEPRAZOLE SODIUM
     Indication: APLASIA PURE RED CELL
     Dosage: 40 MG, 1X/DAY
     Route: 041
     Dates: start: 20201116
  2. TAZOCIN [Suspect]
     Active Substance: PIPERACILLIN SODIUM\TAZOBACTAM SODIUM
     Indication: ANTI-INFECTIVE THERAPY
     Dosage: 4.5 G, 3X/DAY
     Route: 041
     Dates: start: 20201116
  3. ALANYL GLUTAMINE [Suspect]
     Active Substance: ALANYL GLUTAMINE
     Indication: APLASIA PURE RED CELL
     Dosage: 10 G, 1X/DAY
     Route: 041
     Dates: start: 20201116

REACTIONS (1)
  - Hepatic enzyme increased [Recovered/Resolved]

NARRATIVE: CASE EVENT DATE: 20201121
